FAERS Safety Report 8765319 (Version 4)
Quarter: 2013Q1

REPORT INFORMATION
  Report Type: Report from Study
  Country: JP (occurrence: JP)
  Receive Date: 20120831
  Receipt Date: 20130211
  Transmission Date: 20140127
  Serious: Yes (Other)
  Sender: FDA-Public Use
  Company Number: JP-009507513-2012SP025023

PATIENT
  Age: 71 Year
  Sex: Male
  Weight: 56 kg

DRUGS (16)
  1. PEGINTRON [Suspect]
     Indication: CHRONIC HEPATITIS C
     Dosage: 1.5 MICROGRAM PER KILOGRAM, QW,DAILY DOSE UNKNOWN
     Route: 058
     Dates: start: 20120302, end: 20120329
  2. PEGINTRON [Suspect]
     Dosage: 1.2 MICROGRAM PER KILOGRAM, QW,DAILY DOSE UNKNOWN
     Route: 058
     Dates: start: 20120330, end: 20120719
  3. PEGINTRON [Suspect]
     Dosage: 1.5 MICROGRAM PER KILOGRAM, QW, DAILY DOSE UNKNOWN
     Route: 058
     Dates: start: 20120720, end: 20120810
  4. REBETOL [Suspect]
     Indication: CHRONIC HEPATITIS C
     Dosage: 400 MG, QD
     Route: 048
     Dates: start: 20120301, end: 20120315
  5. REBETOL [Suspect]
     Dosage: 200 MG, QD
     Route: 048
     Dates: start: 20120316, end: 20120329
  6. REBETOL [Suspect]
     Dosage: 200 MG, QD
     Route: 048
     Dates: start: 20120713, end: 20120805
  7. REBETOL [Suspect]
     Dosage: 200 MG, ON ALTERMNATE DAYS, DAILY DOSE UNKNOWN
     Route: 048
     Dates: start: 20120713, end: 20120806
  8. TELAVIC [Suspect]
     Indication: CHRONIC HEPATITIS C
     Dosage: 2250 MG, QD
     Route: 048
     Dates: start: 20120301, end: 20120329
  9. TELAVIC [Suspect]
     Dosage: 1500 MG, QD
     Route: 048
     Dates: start: 20120330, end: 20120518
  10. URSO [Concomitant]
     Indication: CHRONIC HEPATITIS C
     Dosage: FORMULATION: POR
     Route: 048
     Dates: end: 20120810
  11. GLYCYRON [Concomitant]
     Indication: CHRONIC HEPATITIS C
     Dosage: 105 MG, QD, FORMULATION POR
     Route: 048
     Dates: end: 20120810
  12. BEZATOL [Concomitant]
     Indication: HYPERLIPIDAEMIA
     Dosage: 400 MG, QD, FORMULATION POR
     Route: 048
  13. FLIVAS [Concomitant]
     Indication: NEUROGENIC BLADDER
     Dosage: 25 MG, QD, FORMULATION POR
     Route: 048
  14. THYRADIN [Concomitant]
     Indication: HYPOTHYROIDISM
     Dosage: 50 MICROGRAM, QD, FORMULATION POR
     Route: 048
  15. BUP-4 [Concomitant]
     Indication: NEUROGENIC BLADDER
     Dosage: 20 MG, QD, FORMULATION: POR
     Route: 048
  16. REZALTAS [Concomitant]
     Indication: HYPERTENSION
     Dosage: 10MG/8MG QD, FORMULATION POR, DAILY DOSE UNKNOWN
     Route: 048

REACTIONS (2)
  - Renal impairment [Not Recovered/Not Resolved]
  - Haemoglobin decreased [Recovering/Resolving]
